FAERS Safety Report 18367747 (Version 3)
Quarter: 2020Q4

REPORT INFORMATION
  Report Type: Spontaneous
  Country: DZ (occurrence: DZ)
  Receive Date: 20201009
  Receipt Date: 20201209
  Transmission Date: 20210114
  Serious: Yes (Other)
  Sender: FDA-Public Use
  Company Number: DZ-SA-2020SA275229

PATIENT

DRUGS (3)
  1. LANTUS [Suspect]
     Active Substance: INSULIN GLARGINE
     Dosage: 12 IU, QD(AT NIGHT )
     Route: 058
     Dates: start: 2015, end: 2020
  2. NOVORAPID [Concomitant]
     Active Substance: INSULIN ASPART
     Dosage: 14 IU, QD(EVENING )
     Route: 065
  3. LANTUS [Suspect]
     Active Substance: INSULIN GLARGINE
     Dosage: 6 IU MORNING, 8 IU AT 13 HOURS, 4 IU AT 16 HOURS AND 6 IU AT EVENING, QID
     Dates: start: 2020

REACTIONS (3)
  - Inappropriate schedule of product administration [Unknown]
  - Angina pectoris [Recovering/Resolving]
  - Hyperglycaemia [Not Recovered/Not Resolved]

NARRATIVE: CASE EVENT DATE: 2020
